FAERS Safety Report 9371538 (Version 1)
Quarter: 2013Q2

REPORT INFORMATION
  Report Type: Not Available
  Country: FR (occurrence: FR)
  Receive Date: 20130627
  Receipt Date: 20130627
  Transmission Date: 20140414
  Serious: Yes (Hospitalization)
  Sender: FDA-Public Use
  Company Number: FR-ASTELLAS-2013EU005389

PATIENT
  Age: 56 Year
  Sex: Male

DRUGS (5)
  1. PROGRAF [Suspect]
     Dosage: UNK
     Route: 048
     Dates: start: 201202
  2. SPIRAMYCIN [Interacting]
     Dosage: 1 DF, TID
     Route: 048
     Dates: start: 20130222, end: 20130224
  3. ROCEPHINE [Concomitant]
     Dosage: 2 G, UNKNOWN/D
     Route: 065
  4. TAVANIC [Concomitant]
     Dosage: UNK
     Route: 065
  5. TAMIFLU [Concomitant]
     Dosage: UNK
     Route: 065

REACTIONS (4)
  - Drug interaction [Unknown]
  - Overdose [Recovered/Resolved]
  - Neutropenia [Recovered/Resolved]
  - Renal failure acute [Recovered/Resolved]
